FAERS Safety Report 25366319 (Version 1)
Quarter: 2025Q2

REPORT INFORMATION
  Report Type: Spontaneous
  Country: US (occurrence: US)
  Receive Date: 20250528
  Receipt Date: 20250528
  Transmission Date: 20250717
  Serious: No
  Sender: STALLERGENES
  Company Number: US-STALCOR-2025-AER-01033

PATIENT
  Age: 7 Year
  Sex: Female

DRUGS (2)
  1. PALFORZIA [Suspect]
     Active Substance: PEANUT
     Indication: Food allergy
     Dosage: 4X20MG: MIX CONTENTS OF CAPSULES WELL WITH SEMISOLID FOOD AS DIRECTED AND CONSUME ONCE DAILY AT APPR
     Route: 048
     Dates: start: 202501
  2. PALFORZIA [Suspect]
     Active Substance: PEANUT
     Dosage: THE LAST DISPENSE OF PALFORZIA 80MG (LEVEL 6) WAS ON 12-MAR-2025. LOT # 2082645, EXPIRATION DATE: 30
     Route: 048
     Dates: start: 202503

REACTIONS (1)
  - Abdominal discomfort [Not Recovered/Not Resolved]
